FAERS Safety Report 8103569-9 (Version None)
Quarter: 2012Q1

REPORT INFORMATION
  Report Type: 
  Country: None (occurrence: None)
  Receive Date: 20120201
  Receipt Date: 20120130
  Transmission Date: 20120608
  Serious: Yes (Hospitalization, Other)
  Sender: FDA-Public Use
  Company Number: PHHY2011US07569

PATIENT
  Sex: Female
  Weight: 94 kg

DRUGS (23)
  1. FUROSEMIDE [Concomitant]
  2. VITAMIN D [Concomitant]
  3. SPIRONOLACTONE [Concomitant]
  4. EXJADE [Suspect]
     Dosage: 2000 MG, DAILY
     Route: 048
  5. LEVATOL [Concomitant]
  6. QUINAPRIL [Concomitant]
  7. VICOPROFEN [Concomitant]
  8. NITROGLYCERIN [Concomitant]
  9. GABAPENTIN [Concomitant]
  10. NEXIUM [Concomitant]
  11. MECLIZINE [Concomitant]
  12. LASIX [Concomitant]
  13. EXJADE [Suspect]
     Indication: MYELODYSPLASTIC SYNDROME
     Dosage: 2500 MG DAILY
     Route: 048
     Dates: start: 20090902
  14. ANTIBIOTICS [Concomitant]
  15. POTASSIUM [Concomitant]
  16. MULTI-VITAMINS [Concomitant]
  17. ASPIRIN [Concomitant]
  18. VICODIN [Concomitant]
  19. LIPOFLAVONOID [Concomitant]
  20. AMBIEN [Concomitant]
  21. COREG [Concomitant]
  22. LEVEMIR [Concomitant]
  23. FLEXPEN [Concomitant]

REACTIONS (15)
  - URINARY TRACT INFECTION [None]
  - SPINAL FRACTURE [None]
  - HYPOAESTHESIA [None]
  - PELVIC FRACTURE [None]
  - FALL [None]
  - ABDOMINAL DISCOMFORT [None]
  - PHARYNGITIS [None]
  - RENAL IMPAIRMENT [None]
  - ALANINE AMINOTRANSFERASE INCREASED [None]
  - BLOOD BILIRUBIN INCREASED [None]
  - BONE PAIN [None]
  - FLUID RETENTION [None]
  - ASPARTATE AMINOTRANSFERASE INCREASED [None]
  - KIDNEY INFECTION [None]
  - LIVER FUNCTION TEST ABNORMAL [None]
